FAERS Safety Report 17796615 (Version 1)
Quarter: 2020Q2

REPORT INFORMATION
  Report Type: Spontaneous
  Country: CZ (occurrence: CZ)
  Receive Date: 20200518
  Receipt Date: 20200518
  Transmission Date: 20200714
  Serious: Yes (Other)
  Sender: FDA-Public Use
  Company Number: CZ-AUROBINDO-AUR-APL-2020-024647

PATIENT
  Age: 71 Year
  Sex: Female

DRUGS (6)
  1. PACLITAXEL. [Suspect]
     Active Substance: PACLITAXEL
     Indication: OVARIAN CANCER
     Dosage: 80 MILLIGRAM/SQ. METER (ON DAY 1,8,15 AND 22)
     Route: 042
     Dates: start: 2018, end: 2018
  2. INSULIN [Concomitant]
     Active Substance: INSULIN NOS
     Indication: TYPE 2 DIABETES MELLITUS
     Dosage: UNK
     Route: 065
  3. PACLITAXEL. [Suspect]
     Active Substance: PACLITAXEL
     Indication: OVARIAN CANCER RECURRENT
  4. BEVACIZUMAB. [Suspect]
     Active Substance: BEVACIZUMAB
     Indication: OVARIAN CANCER
     Dosage: 10 MILLIGRAM/KILOGRAM, ON DAYS 1 AND 15.
     Route: 065
  5. GABAPENTINE FILM-COATED TABLET [Suspect]
     Active Substance: GABAPENTIN
     Indication: NEUROPATHY PERIPHERAL
     Dosage: 300 MILLIGRAM, 3 TIMES A DAY (900 MILLIGRAM DAILY;)
     Route: 048
     Dates: start: 2018, end: 2018
  6. NEURITOGEN TABLETS [DIETARY SUPPLEMENT\HERBALS] [Suspect]
     Active Substance: DIETARY SUPPLEMENT\HERBALS
     Indication: NEUROPATHY PERIPHERAL
     Dosage: UNK (1-0-1)
     Route: 065

REACTIONS (5)
  - Neuropathy peripheral [Unknown]
  - Drug intolerance [Unknown]
  - Condition aggravated [Unknown]
  - Disease progression [Unknown]
  - Dysstasia [Unknown]

NARRATIVE: CASE EVENT DATE: 2018
